FAERS Safety Report 16092707 (Version 2)
Quarter: 2019Q1

REPORT INFORMATION
  Report Type: Other
  Country: PT (occurrence: PT)
  Receive Date: 20190319
  Receipt Date: 20190322
  Transmission Date: 20190418
  Serious: Yes (Death)
  Sender: FDA-Public Use
  Company Number: PT-CELLTRION INC.-2019PT018521

PATIENT

DRUGS (3)
  1. TAZOBACTAM SODIUM AND PIPERACILLIN SODIUM [Concomitant]
     Active Substance: PIPERACILLIN SODIUM\TAZOBACTAM SODIUM
  2. TAXOL [Suspect]
     Active Substance: PACLITAXEL
     Indication: HER-2 POSITIVE BREAST CANCER
     Dosage: 126 MG, 1/WEEK (ON 20/NOV/2018, MOST RECENT DOSE)
     Route: 042
     Dates: start: 20181116
  3. TRASTUZUMAB (UNKNOWN) [Suspect]
     Active Substance: TRASTUZUMAB
     Indication: HER-2 POSITIVE BREAST CANCER
     Dosage: 600 MG, EVERY 3 WEEKS
     Route: 058
     Dates: start: 20181120, end: 20181120

REACTIONS (3)
  - Febrile neutropenia [Fatal]
  - Pancytopenia [Fatal]
  - Product use issue [Unknown]

NARRATIVE: CASE EVENT DATE: 20181126
